FAERS Safety Report 5780476-8 (Version None)
Quarter: 2008Q2

REPORT INFORMATION
  Report Type: 
  Country: None (occurrence: None)
  Receive Date: 20080620
  Receipt Date: 20080609
  Transmission Date: 20081010
  Serious: Yes (Hospitalization)
  Sender: FDA-Public Use
  Company Number: FR-ELI_LILLY_AND_COMPANY-FR200806001787

PATIENT
  Age: 86 Year
  Sex: Female

DRUGS (3)
  1. FORTEO [Suspect]
     Indication: OSTEOPOROSIS
     Dosage: 20 UG, DAILY (1/D)
     Route: 065
     Dates: start: 20080110, end: 20080319
  2. FUROSEMIDE [Concomitant]
     Dosage: UNK, UNKNOWN
     Route: 065
  3. IRBESARTAN [Concomitant]
     Dosage: 150 MG, UNKNOWN
     Route: 065

REACTIONS (4)
  - FACE OEDEMA [None]
  - NEPHROTIC SYNDROME [None]
  - OEDEMA PERIPHERAL [None]
  - PROTEINURIA [None]
